FAERS Safety Report 8581265-1 (Version None)
Quarter: 2012Q3

REPORT INFORMATION
  Report Type: 
  Country: None (occurrence: None)
  Receive Date: 20120809
  Receipt Date: 20120801
  Transmission Date: 20120928
  Serious: Yes (Hospitalization, Disabling)
  Sender: FDA-Public Use
  Company Number: GB-ACCORD-014326

PATIENT
  Age: 21 Year
  Sex: Male

DRUGS (2)
  1. QUETIAPINE FUMARATE [Suspect]
     Route: 048
  2. DIAZEPAM [Concomitant]
     Indication: ANXIETY
     Dosage: 2MG TO 4MG WHEN REQUIRED.
     Route: 048

REACTIONS (1)
  - PRIAPISM [None]
